FAERS Safety Report 4887601-1 (Version None)
Quarter: 2006Q1

REPORT INFORMATION
  Report Type: 
  Country: None (occurrence: None)
  Receive Date: 20060123
  Receipt Date: 20060110
  Transmission Date: 20060701
  Serious: Yes (Hospitalization)
  Sender: FDA-Public Use
  Company Number: PHNU2006DE00486

PATIENT
  Age: 64 Year
  Sex: Male

DRUGS (2)
  1. GLEEVEC [Suspect]
     Indication: GASTROINTESTINAL STROMAL TUMOUR
     Dosage: 400 MG, QD
     Route: 048
     Dates: start: 20040422
  2. DOXY-M ^RATIOPHARM^ [Suspect]
     Route: 048
     Dates: start: 20060107

REACTIONS (6)
  - BLOOD PRESSURE DECREASED [None]
  - DRUG INTERACTION [None]
  - INFECTION PROPHYLAXIS [None]
  - LENTIGO [None]
  - MALIGNANT MELANOMA [None]
  - SKIN NEOPLASM EXCISION [None]
